FAERS Safety Report 6760027-1 (Version None)
Quarter: 2010Q2

REPORT INFORMATION
  Report Type: 
  Country: None (occurrence: None)
  Receive Date: 20100604
  Receipt Date: 20100524
  Transmission Date: 20101027
  Serious: Yes (Hospitalization)
  Sender: FDA-Public Use
  Company Number: 7005384

PATIENT
  Age: 32 Year
  Sex: Male

DRUGS (1)
  1. REBIF [Suspect]
     Indication: MULTIPLE SCLEROSIS
     Dosage: 8.8, 3 IN 1 WK, SUBCUTANEOUS
     Route: 058
     Dates: start: 20060327, end: 20100603

REACTIONS (4)
  - HEADACHE [None]
  - HYPERPYREXIA [None]
  - INJECTION SITE CELLULITIS [None]
  - INJECTION SITE NODULE [None]
